FAERS Safety Report 5802018-0 (Version None)
Quarter: 2008Q3

REPORT INFORMATION
  Report Type: 
  Country: None (occurrence: None)
  Receive Date: 20080707
  Receipt Date: 20080625
  Transmission Date: 20090109
  Serious: Yes (Death)
  Sender: FDA-Public Use
  Company Number: MX-ROCHE-556505

PATIENT
  Sex: Female
  Weight: 56.2 kg

DRUGS (9)
  1. EPOETIN BETA [Suspect]
     Dosage: FREQUENCY REPORTED AS TTW, DOSAGE FORM REPORTED AS 50000
     Route: 058
     Dates: start: 20050915, end: 20080327
  2. EPOETIN BETA [Suspect]
     Route: 058
  3. TELMISARTAN [Concomitant]
     Dates: start: 20050719
  4. TELMISARTAN [Concomitant]
     Dates: start: 20050811, end: 20080329
  5. CALCIUM CARBONATE [Concomitant]
     Dates: start: 20050624
  6. CALCIUM CARBONATE [Concomitant]
     Dates: start: 20050819, end: 20080329
  7. HEPARIN [Concomitant]
     Dates: start: 20030614
  8. HEPARIN [Concomitant]
     Dosage: TOTAL DAILY DOSE REPORTED AS 1000 U/ML
     Dates: start: 20050724, end: 20080329
  9. DEXTROSE [Concomitant]
     Dates: start: 20060710, end: 20080329

REACTIONS (2)
  - DIABETES MELLITUS [None]
  - RENAL FAILURE CHRONIC [None]
